FAERS Safety Report 20452147 (Version 1)
Quarter: 2022Q1

REPORT INFORMATION
  Report Type: Spontaneous
  Country: US (occurrence: US)
  Receive Date: 20220209
  Receipt Date: 20220209
  Transmission Date: 20220424
  Serious: Yes (Other)
  Sender: FDA-Public Use
  Company Number: US-SA-SAC20220204000030

PATIENT
  Age: 55 Year
  Sex: Male

DRUGS (2)
  1. ZANTAC [Suspect]
     Active Substance: RANITIDINE HYDROCHLORIDE
     Indication: Dyspepsia
     Dosage: UNK UNK, QD (DOSE: OTHER)
     Dates: start: 198909, end: 201501
  2. ZANTAC [Suspect]
     Active Substance: RANITIDINE HYDROCHLORIDE
     Indication: Gastrooesophageal reflux disease

REACTIONS (11)
  - Bladder cancer stage IV [Unknown]
  - Hepatic cancer stage IV [Unknown]
  - Breast cancer male [Unknown]
  - Renal cancer stage IV [Unknown]
  - Pancreatic carcinoma [Unknown]
  - Haematological malignancy [Unknown]
  - Prostate cancer [Unknown]
  - Skin cancer [Unknown]
  - Prostate cancer stage IV [Unknown]
  - Adrenal gland cancer [Unknown]
  - Neoplasm malignant [Unknown]

NARRATIVE: CASE EVENT DATE: 20170201
